APPROVED DRUG PRODUCT: MIVACRON IN DEXTROSE 5% IN PLASTIC CONTAINER
Active Ingredient: MIVACURIUM CHLORIDE
Strength: EQ 0.5MG BASE/ML
Dosage Form/Route: INJECTABLE;INJECTION
Application: N020098 | Product #002
Applicant: ABBVIE INC
Approved: Jan 22, 1992 | RLD: No | RS: No | Type: DISCN